FAERS Safety Report 4947722-1 (Version None)
Quarter: 2006Q1

REPORT INFORMATION
  Report Type: 
  Country: None (occurrence: None)
  Receive Date: 20060314
  Receipt Date: 20060308
  Transmission Date: 20060701
  Serious: Yes (Hospitalization, Other)
  Sender: FDA-Public Use
  Company Number: HQWYE253019MAY03

PATIENT
  Age: 60 Year
  Sex: Male
  Weight: 92.1 kg

DRUGS (22)
  1. MYLOTARG [Suspect]
     Indication: ACUTE MYELOID LEUKAEMIA
     Dosage: SEE IMAGE
     Route: 042
     Dates: start: 20030513, end: 20030513
  2. MYLOTARG [Suspect]
     Indication: ACUTE MYELOID LEUKAEMIA
     Dosage: SEE IMAGE
     Route: 042
     Dates: start: 20030527, end: 20030527
  3. NEXIUM [Concomitant]
  4. ALLEGRA [Concomitant]
  5. ALLOPURINOL [Concomitant]
  6. REGLAN [Concomitant]
  7. BENADRYL [Concomitant]
  8. DECADRON [Concomitant]
  9. ACETAMINOPHEN [Concomitant]
  10. CALCIUM GLUCONATE [Concomitant]
  11. POTASSIUM [Concomitant]
  12. MORPHINE [Concomitant]
  13. ZOSYN [Concomitant]
  14. DEMEROL [Concomitant]
  15. VANCOMYCIN [Concomitant]
  16. CIPROFLOXACIN [Concomitant]
  17. ACYCLOVIR [Concomitant]
  18. PHENERGAN (DIBROPROPAMIDINE ISETIONATE/PROMETHAZINE HYDROCHLORIDE) [Concomitant]
  19. ITRACONAZOLE [Concomitant]
  20. MAGNESIUM SULFATE [Concomitant]
  21. HYDROCORTISONE [Concomitant]
  22. ALBECET (AMPHOTERICINE B, LIPOSOME) [Concomitant]

REACTIONS (18)
  - ALANINE AMINOTRANSFERASE INCREASED [None]
  - ASPARTATE AMINOTRANSFERASE INCREASED [None]
  - BLOOD LACTATE DEHYDROGENASE INCREASED [None]
  - CHILLS [None]
  - FEBRILE NEUTROPENIA [None]
  - INFUSION RELATED REACTION [None]
  - LOCALISED OEDEMA [None]
  - MENTAL STATUS CHANGES [None]
  - MUSCLE SPASMS [None]
  - OEDEMA PERIPHERAL [None]
  - RASH [None]
  - RENAL FAILURE [None]
  - SLEEP APNOEA SYNDROME [None]
  - SOLAR ELASTOSIS [None]
  - TELANGIECTASIA [None]
  - THROMBOCYTOPENIA [None]
  - WEIGHT INCREASED [None]
  - WHITE BLOOD CELL COUNT DECREASED [None]
